FAERS Safety Report 10984952 (Version 4)
Quarter: 2016Q1

REPORT INFORMATION
  Report Type: Spontaneous
  Country: US (occurrence: US)
  Receive Date: 20150403
  Receipt Date: 20160322
  Transmission Date: 20160525
  Serious: Yes (Death, Hospitalization, Other)
  Sender: FDA-Public Use
  Company Number: US-GLAXOSMITHKLINE-US2015043648

PATIENT
  Age: 56 Year
  Sex: Male

DRUGS (8)
  1. GLUCOVANCE [Concomitant]
     Active Substance: GLYBURIDE\METFORMIN HYDROCHLORIDE
  2. LAMICTAL [Suspect]
     Active Substance: LAMOTRIGINE
     Indication: SEIZURE
     Dosage: 325 MG, QD
     Dates: start: 20121229
  3. FUROSEMIDE. [Concomitant]
     Active Substance: FUROSEMIDE
  4. LAMICTAL [Suspect]
     Active Substance: LAMOTRIGINE
     Indication: GENERALISED TONIC-CLONIC SEIZURE
     Dosage: 150 MG, BID
     Route: 048
  5. DILANTIN [Concomitant]
     Active Substance: PHENYTOIN
  6. TOPROL XL [Concomitant]
     Active Substance: METOPROLOL SUCCINATE
  7. LORTAB (ACETAMINOPHEN + HYDROCODONE) [Concomitant]
  8. XANAX [Concomitant]
     Active Substance: ALPRAZOLAM

REACTIONS (3)
  - Coagulopathy [Unknown]
  - Dehydration [Recovered/Resolved]
  - Hepatic cancer [Fatal]

NARRATIVE: CASE EVENT DATE: 201410
